FAERS Safety Report 6898111-4 (Version None)
Quarter: 2010Q3

REPORT INFORMATION
  Report Type: 
  Country: None (occurrence: None)
  Receive Date: 20100802
  Receipt Date: 20070911
  Transmission Date: 20110219
  Serious: No
  Sender: FDA-Public Use
  Company Number: US-PFIZER INC-2007076312

PATIENT
  Sex: Female
  Weight: 59 kg

DRUGS (9)
  1. LYRICA [Suspect]
     Dates: start: 20070910
  2. BACLOFEN [Concomitant]
  3. ALL OTHER THERAPEUTIC PRODUCTS [Concomitant]
  4. TIZANIDINE HCL [Concomitant]
  5. ZETIA [Concomitant]
  6. CENTRUM [Concomitant]
  7. ASCORBIC ACID [Concomitant]
  8. VITAMIN D3 [Concomitant]
  9. GINKGO BILOBA LEAF EXTRACT [Concomitant]

REACTIONS (3)
  - ASTHENIA [None]
  - DIZZINESS [None]
  - PARAESTHESIA [None]
